FAERS Safety Report 16403716 (Version 1)
Quarter: 2019Q3

REPORT INFORMATION
  Report Type: Spontaneous
  Country: US (occurrence: US)
  Receive Date: 20190606
  Receipt Date: 20190606
  Transmission Date: 20191004
  Serious: No
  Sender: FDA-Public Use
  Company Number: None

PATIENT

DRUGS (2)
  1. PAXIL [Suspect]
     Active Substance: PAROXETINE HYDROCHLORIDE
  2. VENLAFAXINE ER [Suspect]
     Active Substance: VENLAFAXINE HYDROCHLORIDE

REACTIONS (1)
  - Treatment failure [None]
